FAERS Safety Report 4379897-X (Version None)
Quarter: 2004Q2

REPORT INFORMATION
  Report Type: 
  Country: None (occurrence: None)
  Receive Date: 20040614
  Receipt Date: 20040601
  Transmission Date: 20050107
  Serious: Yes (Death)
  Sender: FDA-Public Use
  Company Number: FR-JNJFOC-20040502798

PATIENT
  Age: 6 Month
  Sex: Female

DRUGS (5)
  1. PROPULSID [Suspect]
     Indication: GASTROOESOPHAGEAL REFLUX DISEASE
     Dosage: 0.8 MG, 4 IN 1 DAY, ORAL
     Route: 048
     Dates: start: 20031208, end: 20031220
  2. CELESTONE [Concomitant]
  3. AUGMENTIN [Concomitant]
  4. ILOMEDINE (ILOPROST) [Concomitant]
  5. AMOXICILLIN TRIHYDRATE [Concomitant]

REACTIONS (7)
  - BRONCHOPULMONARY DYSPLASIA [None]
  - CARDIO-RESPIRATORY ARREST [None]
  - CONDITION AGGRAVATED [None]
  - ESCHERICHIA URINARY TRACT INFECTION [None]
  - PULMONARY HYPERTENSION [None]
  - STAPHYLOCOCCAL INFECTION [None]
  - SUPERINFECTION LUNG [None]
